FAERS Safety Report 10500921 (Version 1)
Quarter: 2014Q4

REPORT INFORMATION
  Report Type: Spontaneous
  Country: GB (occurrence: GB)
  Receive Date: 20141007
  Receipt Date: 20141007
  Transmission Date: 20150528
  Serious: Yes (Hospitalization, Disabling)
  Sender: FDA-Public Use
  Company Number: GB-AUROBINDO-AUR-APL-2014-10485

PATIENT
  Age: 62 Year
  Sex: Female

DRUGS (1)
  1. TERBINAFINE [Suspect]
     Active Substance: TERBINAFINE
     Indication: PRODUCT USED FOR UNKNOWN INDICATION
     Dosage: UNK
     Route: 048
     Dates: start: 20140731, end: 20140805

REACTIONS (6)
  - Syncope [Unknown]
  - Depression [Unknown]
  - Systemic lupus erythematosus rash [Recovered/Resolved with Sequelae]
  - Lethargy [Unknown]
  - Cutaneous lupus erythematosus [Not Recovered/Not Resolved]
  - Malaise [Unknown]
